FAERS Safety Report 20894360 (Version 1)
Quarter: 2022Q2

REPORT INFORMATION
  Report Type: Report from Study
  Country: US (occurrence: US)
  Receive Date: 20220531
  Receipt Date: 20220531
  Transmission Date: 20220721
  Serious: Yes (Other)
  Sender: FDA-Public Use
  Company Number: US-MYLANLABS-2022M1032145

PATIENT
  Sex: Male
  Weight: 92.99 kg

DRUGS (1)
  1. AMNESTEEM [Suspect]
     Active Substance: ISOTRETINOIN
     Indication: Acne
     Dosage: 40 MILLIGRAM, QD (40 MG DAILY BY MONTH!

REACTIONS (3)
  - Agitation [Unknown]
  - Depression [Unknown]
  - Dry skin [Unknown]
